FAERS Safety Report 5223222-9 (Version None)
Quarter: 2007Q1

REPORT INFORMATION
  Report Type: 
  Country: None (occurrence: None)
  Receive Date: 20061201
  Receipt Date: 20060103
  Transmission Date: 20070707
  Serious: No
  Sender: FDA-Public Use
  Company Number: 2006PV006496

PATIENT
  Age: 57 Year
  Sex: Male
  Weight: 115.6672 kg

DRUGS (5)
  1. BYETTA [Suspect]
     Indication: DIABETES MELLITUS NON-INSULIN-DEPENDENT
     Dosage: SEE IMAGE
     Route: 058
     Dates: start: 20060113, end: 20060101
  2. BYETTA [Suspect]
     Indication: DIABETES MELLITUS NON-INSULIN-DEPENDENT
     Dosage: SEE IMAGE
     Route: 058
     Dates: start: 20051228, end: 20060112
  3. BYETTA [Suspect]
     Indication: DIABETES MELLITUS NON-INSULIN-DEPENDENT
     Dosage: SEE IMAGE
     Route: 058
     Dates: start: 20060101, end: 20060126
  4. BYETTA [Suspect]
  5. PIOGLITAZONE/METFORMIN [Concomitant]

REACTIONS (7)
  - ASTHENIA [None]
  - BLOOD GLUCOSE DECREASED [None]
  - FEELING ABNORMAL [None]
  - NAUSEA [None]
  - TREMOR [None]
  - VOMITING [None]
  - WEIGHT DECREASED [None]
